FAERS Safety Report 17110390 (Version 2)
Quarter: 2020Q1

REPORT INFORMATION
  Report Type: Spontaneous
  Country: PT (occurrence: PT)
  Receive Date: 20191204
  Receipt Date: 20200310
  Transmission Date: 20200409
  Serious: Yes (Other)
  Sender: FDA-Public Use
  Company Number: PT-PFIZER INC-2019519373

PATIENT
  Age: 76 Year
  Sex: Male
  Weight: 78 kg

DRUGS (4)
  1. ARTHROTEC [Suspect]
     Active Substance: DICLOFENAC SODIUM\MISOPROSTOL
     Indication: SCIATICA
  2. SAVAL [AMLODIPINE BESILATE;LISINOPRIL DIHYDRATE] [Concomitant]
     Indication: HYPERTENSION
     Dosage: UNK
     Route: 048
  3. ARTHROTEC [Suspect]
     Active Substance: DICLOFENAC SODIUM\MISOPROSTOL
     Indication: BACK PAIN
     Dosage: 1 DF, 2X/DAY (12/12H)
     Route: 048
     Dates: start: 20190529, end: 20190623
  4. VENOSMIL [HIDROSMIN] [Concomitant]
     Dosage: UNK
     Route: 048

REACTIONS (3)
  - Blister [Recovered/Resolved]
  - Pruritus [Recovered/Resolved]
  - Skin exfoliation [Recovered/Resolved]

NARRATIVE: CASE EVENT DATE: 20190529
